FAERS Safety Report 9302706 (Version 1)
Quarter: 2013Q2

REPORT INFORMATION
  Report Type: Report from Study
  Country: IN (occurrence: IN)
  Receive Date: 20130522
  Receipt Date: 20130522
  Transmission Date: 20140414
  Serious: Yes (Hospitalization)
  Sender: FDA-Public Use
  Company Number: PHHY2013IN049775

PATIENT
  Age: 70 Year
  Sex: Male
  Weight: 65 kg

DRUGS (6)
  1. EXELON PATCH [Suspect]
     Indication: DEMENTIA ALZHEIMER^S TYPE
     Dosage: 4.6 MG, DAILY
     Route: 062
  2. EXELON PATCH [Suspect]
     Dosage: 9.5 MG, DAILY
     Route: 062
     Dates: end: 20130507
  3. ADMENTA [Concomitant]
     Indication: NEURODEGENERATIVE DISORDER
     Dosage: 5 MG, DAILY
     Route: 048
  4. GLYCOMET [Concomitant]
     Indication: DIABETES MELLITUS
     Dosage: UNK UKN, DAILY (SUSTAINED RELEASE)
     Route: 048
  5. ECOSPRIN [Concomitant]
     Indication: ANALGESIC INTERVENTION SUPPORTIVE THERAPY
     Dosage: UNK UKN, DAILY
     Route: 048
  6. S-ADENOSYL-L-METHIONINE [Concomitant]
     Indication: NUTRITIONAL SUPPLEMENTATION
     Dosage: 200 MG, DAILY
     Route: 048

REACTIONS (5)
  - Parkinsonism [Unknown]
  - Anxiety [Recovering/Resolving]
  - Delusion [Not Recovered/Not Resolved]
  - Hallucination [Recovering/Resolving]
  - Decreased appetite [Recovering/Resolving]
